FAERS Safety Report 7605024-9 (Version None)
Quarter: 2011Q3

REPORT INFORMATION
  Report Type: 
  Country: None (occurrence: None)
  Receive Date: 20110713
  Receipt Date: 20110705
  Transmission Date: 20111222
  Serious: No
  Sender: FDA-Public Use
  Company Number: US-BIOGENIDEC-2011BI025148

PATIENT
  Age: 65 Year
  Sex: Male

DRUGS (3)
  1. AVONEX [Suspect]
     Route: 030
     Dates: start: 20080101
  2. AVONEX [Suspect]
     Route: 030
     Dates: start: 20030101, end: 20080101
  3. AVONEX [Suspect]
     Indication: MULTIPLE SCLEROSIS
     Route: 030
     Dates: start: 20000101, end: 20030101

REACTIONS (6)
  - MALAISE [None]
  - GAIT DISTURBANCE [None]
  - BALANCE DISORDER [None]
  - FATIGUE [None]
  - SPEECH DISORDER [None]
  - FALL [None]
